FAERS Safety Report 15718255 (Version 1)
Quarter: 2018Q4

REPORT INFORMATION
  Report Type: Spontaneous
  Country: US (occurrence: US)
  Receive Date: 20181213
  Receipt Date: 20181213
  Transmission Date: 20190205
  Serious: Yes (Other)
  Sender: FDA-Public Use
  Company Number: None

PATIENT

DRUGS (1)
  1. BUPIVACAINE. [Suspect]
     Active Substance: BUPIVACAINE
     Dosage: ?          OTHER FREQUENCY:ONCE;OTHER ROUTE:SPINAL?

REACTIONS (3)
  - Drug ineffective [None]
  - Product substitution issue [None]
  - Product use complaint [None]
